FAERS Safety Report 4892780-6 (Version None)
Quarter: 2006Q1

REPORT INFORMATION
  Report Type: 
  Country: None (occurrence: None)
  Receive Date: 20060126
  Receipt Date: 20050715
  Transmission Date: 20060701
  Serious: Yes (Other)
  Sender: FDA-Public Use
  Company Number: 200515796US

PATIENT
  Sex: Male
  Weight: 88 kg

DRUGS (11)
  1. AMARYL [Suspect]
     Indication: DIABETES MELLITUS NON-INSULIN-DEPENDENT
     Dates: start: 20050201
  2. AMARYL [Suspect]
  3. AVANDIA [Suspect]
     Indication: DIABETES MELLITUS NON-INSULIN-DEPENDENT
     Dates: start: 20050201
  4. AVANDIA [Suspect]
  5. LISINOPRIL [Concomitant]
     Dosage: DOSE: UNK
  6. CARVEDILOL [Concomitant]
     Dates: start: 20050201
  7. FRUSEMIDE [Concomitant]
     Dosage: DOSE: UNK
  8. ALFUZOSIN [Concomitant]
     Dosage: DOSE: UNK
  9. ASPIRIN [Concomitant]
     Dosage: DOSE: UNK
  10. METAGLIP [Concomitant]
     Dosage: DOSE: UNK
  11. ALLOPURINOL [Concomitant]
     Dosage: DOSE: UNK
     Dates: start: 20040201

REACTIONS (6)
  - DIZZINESS [None]
  - DRUG INEFFECTIVE [None]
  - DYSPNOEA [None]
  - FATIGUE [None]
  - FLUID RETENTION [None]
  - HYPOGLYCAEMIA [None]
